FAERS Safety Report 15704633 (Version 2)
Quarter: 2019Q1

REPORT INFORMATION
  Report Type: Report from Study
  Country: US (occurrence: US)
  Receive Date: 20181210
  Receipt Date: 20190121
  Transmission Date: 20190417
  Serious: No
  Sender: FDA-Public Use
  Company Number: US-PFIZER INC-2018508036

PATIENT
  Age: 54 Year
  Sex: Female

DRUGS (1)
  1. BOSULIF [Suspect]
     Active Substance: BOSUTINIB MONOHYDRATE
     Dosage: 400 MG, UNK

REACTIONS (4)
  - Back pain [Unknown]
  - Urinary tract infection [Unknown]
  - Diarrhoea [Unknown]
  - Arthralgia [Unknown]
